FAERS Safety Report 9030594 (Version 1)
Quarter: 2013Q1

REPORT INFORMATION
  Report Type: Spontaneous
  Country: SE (occurrence: SE)
  Receive Date: 20130123
  Receipt Date: 20130123
  Transmission Date: 20140127
  Serious: Yes (Hospitalization)
  Sender: FDA-Public Use
  Company Number: SE-009507513-1301SWE007242

PATIENT
  Age: 87 Year
  Sex: Female

DRUGS (19)
  1. MIRTAZAPINE [Suspect]
     Route: 048
  2. NOVORAPID FLEXPEN [Concomitant]
  3. METOPROLOL [Concomitant]
  4. RAMIPRIL [Concomitant]
  5. AMLODIPINE [Concomitant]
  6. OVESTERIN [Concomitant]
  7. ALVEDON [Concomitant]
     Route: 048
  8. BEHEPAN [Concomitant]
     Route: 048
  9. NITROGLYCERIN [Concomitant]
  10. SOBRIL [Concomitant]
     Route: 048
  11. FURIX [Concomitant]
     Route: 048
  12. ZANTAC [Concomitant]
  13. FENURIL [Concomitant]
  14. ELOCON [Concomitant]
  15. TROMBYL [Concomitant]
     Route: 048
  16. LOPERAMIDE HYDROCHLORIDE [Concomitant]
  17. VISCOTEARS [Concomitant]
  18. ZOPICLONE [Concomitant]
  19. LANTUS [Concomitant]

REACTIONS (2)
  - Hyponatraemia [Recovered/Resolved]
  - Inappropriate antidiuretic hormone secretion [Recovered/Resolved]
